FAERS Safety Report 14739642 (Version 1)
Quarter: 2018Q2

REPORT INFORMATION
  Report Type: Spontaneous
  Country: JP (occurrence: JP)
  Receive Date: 20180410
  Receipt Date: 20180410
  Transmission Date: 20180711
  Serious: Yes (Other)
  Sender: FDA-Public Use
  Company Number: JP-ACTELION-A-CH2017-155242

PATIENT
  Age: 54 Year
  Sex: Female

DRUGS (11)
  1. CRAVIT [Suspect]
     Active Substance: LEVOFLOXACIN
     Indication: LOCALISED INFECTION
     Route: 048
  2. REVATIO [Concomitant]
     Active Substance: SILDENAFIL CITRATE
  3. PREDNISOLONE. [Concomitant]
     Active Substance: PREDNISOLONE
  4. OPSUMIT [Suspect]
     Active Substance: MACITENTAN
     Indication: PULMONARY ARTERIAL HYPERTENSION
     Dosage: 10 MG, QD
     Route: 048
     Dates: start: 20170426, end: 20170610
  5. TRACLEER [Concomitant]
     Active Substance: BOSENTAN
  6. BERAPROST NA [Concomitant]
     Active Substance: BERAPROST SODIUM
  7. NICO [Concomitant]
  8. FUROSEMIDE. [Concomitant]
     Active Substance: FUROSEMIDE
  9. MEROPEN [Suspect]
     Active Substance: MEROPENEM
     Indication: LOCALISED INFECTION
     Route: 042
  10. CLINDAMYCIN HYDROCHLORIDE. [Suspect]
     Active Substance: CLINDAMYCIN HYDROCHLORIDE
     Indication: LOCALISED INFECTION
     Route: 048
  11. TRACLEER [Concomitant]
     Active Substance: BOSENTAN

REACTIONS (3)
  - Anaemia [Not Recovered/Not Resolved]
  - White blood cell count decreased [Recovered/Resolved]
  - Transfusion [Unknown]

NARRATIVE: CASE EVENT DATE: 20170609
